FAERS Safety Report 7265060-1 (Version None)
Quarter: 2011Q1

REPORT INFORMATION
  Report Type: 
  Country: None (occurrence: None)
  Receive Date: 20110131
  Receipt Date: 20110124
  Transmission Date: 20110831
  Serious: Yes (Hospitalization)
  Sender: FDA-Public Use
  Company Number: US-TEVA-264416USA

PATIENT
  Age: 85 Year
  Sex: Male

DRUGS (2)
  1. LISINOPRIL [Suspect]
  2. TIZANIDINE [Interacting]
     Indication: BACK PAIN

REACTIONS (3)
  - HYPOTENSION [None]
  - DRUG INTERACTION [None]
  - BRADYCARDIA [None]
